FAERS Safety Report 15480508 (Version 3)
Quarter: 2021Q2

REPORT INFORMATION
  Report Type: Report from Study
  Country: PT (occurrence: PT)
  Receive Date: 20181010
  Receipt Date: 20210619
  Transmission Date: 20210716
  Serious: Yes (Life-Threatening, Other)
  Sender: FDA-Public Use
  Company Number: PT-AUROBINDO-AUR-APL-2018-048819

PATIENT
  Age: 34 Year
  Sex: Male

DRUGS (11)
  1. STAVUDINE. [Suspect]
     Active Substance: STAVUDINE
     Indication: HEPATITIS C
     Dosage: 1 ML OF TRIAMCINOLONE 40 MG INJECTED ()
     Route: 065
  2. STAVUDINE. [Suspect]
     Active Substance: STAVUDINE
     Indication: CHRONIC HEPATITIS C
  3. LOPINAVIR + RITONAVIR [Suspect]
     Active Substance: LOPINAVIR\RITONAVIR
     Indication: HIV INFECTION CDC CATEGORY C
  4. LOPINAVIR + RITONAVIR [Suspect]
     Active Substance: LOPINAVIR\RITONAVIR
     Indication: HEPATITIS C
     Dosage: 1 ML OF TRIAMCINOLONE 40 MG INJECTED
     Route: 065
  5. LOPINAVIR + RITONAVIR [Suspect]
     Active Substance: LOPINAVIR\RITONAVIR
     Indication: CHRONIC HEPATITIS C
     Dosage: UNK
     Route: 048
  6. STAVUDINE. [Suspect]
     Active Substance: STAVUDINE
     Indication: HIV INFECTION
  7. LAMIVUDINE. [Suspect]
     Active Substance: LAMIVUDINE
     Indication: DRUG-INDUCED LIVER INJURY
     Dosage: UNK
     Route: 048
  8. LAMIVUDINE. [Suspect]
     Active Substance: LAMIVUDINE
     Dosage: UNK
     Route: 065
  9. LOPINAVIR + RITONAVIR [Suspect]
     Active Substance: LOPINAVIR\RITONAVIR
     Indication: HIV INFECTION
  10. LAMIVUDINE. [Suspect]
     Active Substance: LAMIVUDINE
     Dosage: 1 ML OF TRIAMCINOLONE 40 MG INJECTED ()
     Route: 065
  11. STAVUDINE. [Suspect]
     Active Substance: STAVUDINE
     Indication: HIV INFECTION CDC CATEGORY C
     Dosage: UNK
     Route: 048

REACTIONS (2)
  - Hepatic fibrosis [Unknown]
  - Drug-induced liver injury [Recovered/Resolved]
